FAERS Safety Report 8138633-1 (Version None)
Quarter: 2012Q1

REPORT INFORMATION
  Report Type: 
  Country: None (occurrence: None)
  Receive Date: 20120213
  Receipt Date: 20120202
  Transmission Date: 20120608
  Serious: Yes (Other)
  Sender: FDA-Public Use
  Company Number: 2012MA001748

PATIENT
  Age: 53 Year
  Sex: Female

DRUGS (13)
  1. LISINOPRIL [Concomitant]
  2. CETIRIZINE [Concomitant]
  3. ACETAMINOPHEN AND CODEINE PHOSPHATE [Suspect]
     Dates: start: 20080505
  4. ACETYLSALICYLIC ACID SRT [Concomitant]
  5. CALCEOS [Concomitant]
  6. LATANOPROST [Concomitant]
  7. BEZAFIBRATE [Concomitant]
  8. METFORMIN HCL [Concomitant]
  9. PHENOXYMETHYLPHENICILLIN [Concomitant]
  10. NORTRIPTYLINE HCL [Concomitant]
  11. BECONASE [Concomitant]
  12. ALGESAL [Concomitant]
  13. IMUVAC [Concomitant]

REACTIONS (2)
  - CONSTIPATION [None]
  - GASTRITIS [None]
